FAERS Safety Report 11985509 (Version 1)
Quarter: 2016Q1

REPORT INFORMATION
  Report Type: Not Available
  Country: US (occurrence: US)
  Receive Date: 20160201
  Receipt Date: 20160201
  Transmission Date: 20160526
  Serious: No
  Sender: FDA-Public Use
  Company Number: US-ANIPHARMA-2015-US-001144

PATIENT
  Age: 61 Year
  Sex: Male
  Weight: 67.59 kg

DRUGS (1)
  1. FLUVOXAMINE (NON-SPECIFIC) [Suspect]
     Active Substance: FLUVOXAMINE
     Dosage: 100 MG 3-4 TIMES DAILY
     Route: 048

REACTIONS (5)
  - Somnolence [Unknown]
  - Hyperventilation [Unknown]
  - Diarrhoea [Unknown]
  - Nausea [Unknown]
  - Fatigue [Unknown]
